FAERS Safety Report 17515183 (Version 1)
Quarter: 2020Q1

REPORT INFORMATION
  Report Type: Spontaneous
  Country: FR (occurrence: FR)
  Receive Date: 20200309
  Receipt Date: 20200309
  Transmission Date: 20200409
  Serious: Yes (Hospitalization)
  Sender: FDA-Public Use
  Company Number: FR-TEVA-2020-FR-1195621

PATIENT
  Age: 68 Year
  Sex: Female

DRUGS (7)
  1. CYCLOPHOSPHAMIDE MONOHYDRATE [Suspect]
     Active Substance: CYCLOPHOSPHAMIDE
     Indication: BREAST CANCER
     Dosage: 500 MG/M2
     Route: 042
     Dates: start: 20200123, end: 20200123
  2. EPIRUBICINE (CHLORHYDRATE D^) [Suspect]
     Active Substance: EPIRUBICIN HYDROCHLORIDE
     Indication: BREAST CANCER
     Dosage: 100 MG/M2
     Route: 042
     Dates: start: 20200123, end: 20200123
  3. AZILECT [Concomitant]
     Active Substance: RASAGILINE MESYLATE
     Dosage: 200 MILLIGRAM
     Route: 048
  4. XALATAN 0,005 POUR CENT, COLLYRE EN SOLUTION [Concomitant]
     Route: 047
  5. NEUPRO 6 MG/24 H, DISPOSITIF TRANSDERMIQUE [Concomitant]
     Dosage: 12 MILLIGRAM
     Route: 062
  6. STALEVO [Concomitant]
     Active Substance: CARBIDOPA\ENTACAPONE\LEVODOPA
     Route: 048
  7. MANTADIX 100 MG, CAPSULE [Concomitant]
     Dosage: 200 MILLIGRAM
     Route: 048

REACTIONS (2)
  - Febrile bone marrow aplasia [Recovered/Resolved]
  - Sepsis [Recovering/Resolving]

NARRATIVE: CASE EVENT DATE: 20200130
